FAERS Safety Report 6056907-5 (Version None)
Quarter: 2009Q1

REPORT INFORMATION
  Report Type: 
  Country: None (occurrence: None)
  Receive Date: 20090129
  Receipt Date: 20090120
  Transmission Date: 20090719
  Serious: Yes (Hospitalization)
  Sender: FDA-Public Use
  Company Number: B0555780A

PATIENT
  Age: 48 Year
  Sex: Male

DRUGS (6)
  1. STOCRIN [Suspect]
     Indication: DRUG USE FOR UNKNOWN INDICATION
     Route: 065
     Dates: start: 20080301, end: 20080901
  2. ABACAVIR SULFATE/LAMIVUDINE [Suspect]
     Indication: DRUG USE FOR UNKNOWN INDICATION
     Route: 048
     Dates: start: 20080301, end: 20080901
  3. DICLOFENAC SODIUM [Suspect]
     Dosage: 50MG THREE TIMES PER DAY
     Route: 048
     Dates: start: 20080701, end: 20080901
  4. COMBIVIR [Concomitant]
  5. KALETRA [Concomitant]
  6. HIV TREATMENTS (UNSPECIFIED) [Concomitant]
     Indication: HIV INFECTION

REACTIONS (5)
  - BIOPSY LIVER ABNORMAL [None]
  - FATIGUE [None]
  - HEPATITIS [None]
  - JAUNDICE [None]
  - LABORATORY TEST ABNORMAL [None]
